FAERS Safety Report 6934318-5 (Version None)
Quarter: 2010Q3

REPORT INFORMATION
  Report Type: 
  Country: None (occurrence: None)
  Receive Date: 20100820
  Receipt Date: 20100812
  Transmission Date: 20110219
  Serious: Yes (Other)
  Sender: FDA-Public Use
  Company Number: A0860486A

PATIENT

DRUGS (4)
  1. ZIDOVUDINE [Suspect]
     Indication: ANTIRETROVIRAL THERAPY
  2. EPIVIR [Suspect]
     Indication: ANTIRETROVIRAL THERAPY
     Route: 065
  3. SUSTIVA [Suspect]
     Indication: ANTIRETROVIRAL THERAPY
  4. VIRACEPT [Suspect]
     Indication: ANTIRETROVIRAL THERAPY

REACTIONS (2)
  - ATRIAL SEPTAL DEFECT [None]
  - DRUG EXPOSURE DURING PREGNANCY [None]
